FAERS Safety Report 15523763 (Version 2)
Quarter: 2018Q4

REPORT INFORMATION
  Report Type: Report from Study
  Country: GB (occurrence: GB)
  Receive Date: 20181018
  Receipt Date: 20181031
  Transmission Date: 20190205
  Serious: Yes (Hospitalization)
  Sender: FDA-Public Use
  Company Number: GB-ROCHE-2199389

PATIENT
  Age: 69 Year
  Sex: Female
  Weight: 67.4 kg

DRUGS (16)
  1. ATEZOLIZUMAB. [Suspect]
     Active Substance: ATEZOLIZUMAB
     Indication: MALIGNANT MELANOMA
     Dosage: ON 27/SEP/2018, SHE RECEIVED THE MOST RECENT DOSE OF ATEZOLIZUMAB (840MG) PRIOR TO EVENT ONSET.
     Route: 042
     Dates: start: 20180621
  2. RAMIPRIL. [Concomitant]
     Active Substance: RAMIPRIL
     Indication: HYPERTENSION
     Route: 048
  3. DIFFLAM [Concomitant]
     Active Substance: BENZYDAMINE HYDROCHLORIDE
     Indication: MOUTH ULCERATION
     Route: 061
     Dates: start: 20180806
  4. DOMPERIDONE [Concomitant]
     Active Substance: DOMPERIDONE
     Indication: NAUSEA
     Route: 048
     Dates: start: 20180906
  5. COBIMETINIB. [Suspect]
     Active Substance: COBIMETINIB
     Indication: MALIGNANT MELANOMA
     Dosage: ON 10/OCT/2018, SHE RECEIVED THE MOST RECENT DOSE OF COBIMETINIB (40MG) PRIOR TO EVENT ONSET.
     Route: 048
     Dates: start: 20180621
  6. OXETACAINE [Concomitant]
     Active Substance: OXETHAZAINE
     Dosage: AND ANTACID
     Route: 048
     Dates: start: 20180717
  7. CAPHOSOL [Concomitant]
     Active Substance: CALCIUM CHLORIDE\SODIUM CHLORIDE\SODIUM PHOSPHATE, DIBASIC, ANHYDROUS\SODIUM PHOSPHATE, MONOBASIC, ANHYDROUS
     Indication: MOUTH ULCERATION
     Dosage: 1 UNIT
     Route: 048
     Dates: start: 20180807
  8. PREDNISOLONE. [Concomitant]
     Active Substance: PREDNISOLONE
     Indication: MOUTH ULCERATION
     Dosage: SOLUBLE
     Route: 061
     Dates: start: 20180806
  9. HYDROCORTISONE. [Concomitant]
     Active Substance: HYDROCORTISONE
     Indication: RASH
     Dosage: 1 UNIT
     Route: 061
     Dates: start: 20180803
  10. SALBUTAMOL [Concomitant]
     Active Substance: ALBUTEROL
     Indication: ASTHMA
     Route: 050
  11. ASPIRIN. [Concomitant]
     Active Substance: ASPIRIN
     Indication: MOUTH ULCERATION
     Dosage: DISPERSIBLE
     Route: 061
     Dates: start: 20180716
  12. CARMELLOSE SODIUM [Concomitant]
     Active Substance: CARBOXYMETHYLCELLULOSE SODIUM
     Indication: DRY EYE
     Route: 061
  13. FLUTICASONE FUROATE [Concomitant]
     Active Substance: FLUTICASONE FUROATE
     Indication: ASTHMA
     Route: 050
  14. SIMVASTATIN. [Concomitant]
     Active Substance: SIMVASTATIN
     Indication: HYPERCHOLESTEROLAEMIA
     Route: 048
  15. OMEPRAZOLE. [Concomitant]
     Active Substance: OMEPRAZOLE
     Indication: HIATUS HERNIA
     Route: 048
  16. OXETACAINE [Concomitant]
     Active Substance: OXETHAZAINE
     Indication: MOUTH ULCERATION
     Dosage: AND ANTACID
     Route: 048
     Dates: start: 20180717

REACTIONS (1)
  - Diarrhoea [Recovered/Resolved]

NARRATIVE: CASE EVENT DATE: 20181011
